FAERS Safety Report 7612842-X (Version None)
Quarter: 2011Q3

REPORT INFORMATION
  Report Type: 
  Country: None (occurrence: None)
  Receive Date: 20110708
  Receipt Date: 20110627
  Transmission Date: 20111222
  Serious: Yes (Hospitalization, Other)
  Sender: FDA-Public Use
  Company Number: AUR-APL-2011-02893

PATIENT
  Age: 89 Year
  Sex: Female

DRUGS (11)
  1. LISINOPRIL [Suspect]
     Indication: HYPERTENSION
     Dosage: 40 MG (40 MG, 1 IN 1 D), ORAL
     Route: 048
     Dates: start: 20100101, end: 20110508
  2. ACETAMINOPHEN [Concomitant]
  3. MACROGOL (MACROGOL) [Suspect]
     Indication: PRODUCT USED FOR UNKNOWN INDICATION
  4. AMITRIPTYLINE HCL [Concomitant]
  5. ASPIRIN [Concomitant]
  6. LACTULOSE [Concomitant]
  7. OMEPRAZOLE [Concomitant]
  8. SIMVASTATIN [Concomitant]
  9. QUININE SULPHATE (QUININE SULFATE) [Concomitant]
  10. AMLODIPINE [Concomitant]
  11. NEFOPAM (NEFOPAM) [Concomitant]

REACTIONS (2)
  - SWOLLEN TONGUE [None]
  - SALIVARY GLAND ENLARGEMENT [None]
